FAERS Safety Report 19177165 (Version 2)
Quarter: 2021Q2

REPORT INFORMATION
  Report Type: Spontaneous
  Country: DE (occurrence: DE)
  Receive Date: 20210425
  Receipt Date: 20210610
  Transmission Date: 20210717
  Serious: Yes (Death, Life-Threatening, Hospitalization, Other)
  Sender: FDA-Public Use
  Company Number: DE-JNJFOC-20160426918

PATIENT
  Age: 61 Year
  Sex: Male
  Weight: 94 kg

DRUGS (19)
  1. GLIBENCLAMIDE [Concomitant]
     Active Substance: GLYBURIDE
     Route: 065
  2. FOLIC ACID. [Concomitant]
     Active Substance: FOLIC ACID
     Indication: PSORIATIC ARTHROPATHY
  3. SIMVASTATIN. [Concomitant]
     Active Substance: SIMVASTATIN
     Route: 065
  4. MULTAQ [Concomitant]
     Active Substance: DRONEDARONE
     Route: 065
  5. TORASEMIDE [Concomitant]
     Active Substance: TORSEMIDE
     Route: 065
  6. ACTRAPID [Concomitant]
     Active Substance: INSULIN HUMAN
  7. PANTOPRAZOLE SODIUM SESQUIHYDRATE [Concomitant]
     Active Substance: PANTOPRAZOLE SODIUM
  8. CARDULAR [Concomitant]
     Active Substance: DOXAZOSIN MESYLATE
     Route: 065
  9. DIGITOXIN [Concomitant]
     Active Substance: DIGITOXIN
  10. FUMADERM [Concomitant]
     Active Substance: CALCIUM MONOETHYLFUMARATE\DIMETHYL FUMARATE\MAGNESIUM MONOETHYLFUMARATE\ZINC MONOETHYLFUMARATE
     Route: 065
  11. ENAHEXAL COMP [Concomitant]
     Active Substance: ENALAPRIL MALEATE\HYDROCHLOROTHIAZIDE
  12. VELMETIA [Concomitant]
     Active Substance: METFORMIN\SITAGLIPTIN
  13. ENALAPRIL [Concomitant]
     Active Substance: ENALAPRIL
     Route: 065
  14. ELIQUIS [Concomitant]
     Active Substance: APIXABAN
     Route: 065
  15. METHOTREXATE. [Concomitant]
     Active Substance: METHOTREXATE
     Indication: PSORIATIC ARTHROPATHY
  16. NIFEDIPIN [Concomitant]
     Active Substance: NIFEDIPINE
     Route: 065
  17. SIMPONI [Suspect]
     Active Substance: GOLIMUMAB
     Indication: PSORIATIC ARTHROPATHY
     Route: 058
     Dates: start: 20091117, end: 202010
  18. METOPROLOL. [Concomitant]
     Active Substance: METOPROLOL
     Route: 065
  19. VELMETIA [Concomitant]
     Active Substance: METFORMIN\SITAGLIPTIN
     Route: 065

REACTIONS (6)
  - Hepatic neoplasm [Fatal]
  - Metastases to lymph nodes [Fatal]
  - Hypercalcaemia [Unknown]
  - Metastases to bone [Fatal]
  - Skin ulcer [Not Recovered/Not Resolved]
  - Helicobacter gastritis [Unknown]

NARRATIVE: CASE EVENT DATE: 20160128
